FAERS Safety Report 4367218-8 (Version None)
Quarter: 2004Q2

REPORT INFORMATION
  Report Type: 
  Country: None (occurrence: None)
  Receive Date: 20040526
  Receipt Date: 20040518
  Transmission Date: 20050107
  Serious: Yes (Hospitalization)
  Sender: FDA-Public Use
  Company Number: 2004UW10364

PATIENT
  Age: 55 Year
  Sex: Female
  Weight: 79.3795 kg

DRUGS (5)
  1. IRESSA [Suspect]
     Indication: LUNG NEOPLASM MALIGNANT
     Dates: start: 20040101, end: 20040401
  2. OXYCONTIN [Concomitant]
  3. MORPHINE [Concomitant]
  4. DARVOCET-N 100 [Concomitant]
  5. DILAUDID [Concomitant]

REACTIONS (2)
  - COLON CANCER RECURRENT [None]
  - INTESTINAL OBSTRUCTION [None]
